FAERS Safety Report 22355516 (Version 1)
Quarter: 2023Q2

REPORT INFORMATION
  Report Type: Spontaneous
  Country: CN (occurrence: CN)
  Receive Date: 20230523
  Receipt Date: 20230523
  Transmission Date: 20230722
  Serious: Yes (Other)
  Sender: FDA-Public Use
  Company Number: CN-002147023-NVSC2023CN116331

PATIENT
  Age: 27 Year
  Sex: Male

DRUGS (2)
  1. CYCLOSPORINE [Suspect]
     Active Substance: CYCLOSPORINE
     Indication: Aplastic anaemia
     Dosage: 50 MG, TID
     Route: 048
     Dates: start: 2018
  2. BICYCLOL [Concomitant]
     Active Substance: BICYCLOL
     Indication: Prophylaxis
     Dosage: UNK
     Route: 048
     Dates: start: 2018

REACTIONS (2)
  - Gingival hypertrophy [Recovering/Resolving]
  - Product use in unapproved indication [Unknown]
